FAERS Safety Report 8247925 (Version 5)
Quarter: 2015Q1

REPORT INFORMATION
  Report Type: Spontaneous
  Country: US (occurrence: US)
  Receive Date: 20111116
  Receipt Date: 20150213
  Transmission Date: 20150721
  Serious: Yes (Hospitalization, Other)
  Sender: FDA-Public Use
  Company Number: US-ASTRAZENECA-2011SE68115

PATIENT
  Age: 56 Year
  Sex: Male

DRUGS (2)
  1. PROTONIX [Concomitant]
     Active Substance: PANTOPRAZOLE SODIUM
     Indication: GASTROOESOPHAGEAL REFLUX DISEASE
  2. CRESTOR [Suspect]
     Active Substance: ROSUVASTATIN CALCIUM
     Route: 048

REACTIONS (14)
  - Gastrointestinal disorder [Unknown]
  - Thyroid disorder [Recovering/Resolving]
  - Rash [Unknown]
  - Pancreatic carcinoma [Unknown]
  - Myalgia [Unknown]
  - Hypertension [Unknown]
  - Arterial occlusive disease [Unknown]
  - Pseudocyst [Unknown]
  - Alcoholic [Unknown]
  - Pancreatitis [Not Recovered/Not Resolved]
  - Blood cholesterol increased [Unknown]
  - Arthritis reactive [Unknown]
  - Glucose tolerance impaired [Unknown]
  - Inadequate diet [Unknown]
